FAERS Safety Report 7847337 (Version 2)
Quarter: 2017Q4

REPORT INFORMATION
  Report Type: Report from Study
  Country: JP (occurrence: JP)
  Receive Date: 20110309
  Receipt Date: 20171121
  Transmission Date: 20180321
  Serious: Yes (Hospitalization, Other)
  Sender: FDA-Public Use
  Company Number: PHHO2008JP14791

PATIENT
  Age: 50 Year
  Sex: Female
  Weight: 48 kg

DRUGS (4)
  1. DEPAS [Concomitant]
     Active Substance: ETIZOLAM
  2. GILENYA [Suspect]
     Active Substance: FINGOLIMOD HYDROCHLORIDE
     Route: 048
     Dates: start: 20081203, end: 20081206
  3. ROHYPNOL [Concomitant]
     Active Substance: FLUNITRAZEPAM
  4. GILENYA [Suspect]
     Active Substance: FINGOLIMOD HYDROCHLORIDE
     Indication: MULTIPLE SCLEROSIS
     Dosage: 0.5 MG, UNK
     Route: 048
     Dates: start: 20081203, end: 20081206

REACTIONS (13)
  - Chest discomfort [Recovering/Resolving]
  - Multiple sclerosis relapse [Unknown]
  - Fall [Recovering/Resolving]
  - Musculoskeletal discomfort [Recovering/Resolving]
  - Diplopia [Recovering/Resolving]
  - Dyspnoea [Unknown]
  - Sinus bradycardia [Recovering/Resolving]
  - Somnolence [Unknown]
  - Chest pain [Unknown]
  - Malaise [Recovering/Resolving]
  - Headache [Unknown]
  - Nuclear magnetic resonance imaging abnormal [Recovering/Resolving]
  - Swelling face [Unknown]

NARRATIVE: CASE EVENT DATE: 20081204
